FAERS Safety Report 22141807 (Version 1)
Quarter: 2023Q1

REPORT INFORMATION
  Report Type: Spontaneous
  Country: US (occurrence: None)
  Receive Date: 20230326
  Receipt Date: 20230326
  Transmission Date: 20230417
  Serious: Yes (Other)
  Sender: FDA-Public Use
  Company Number: None

PATIENT
  Age: 67 Year
  Sex: Male
  Weight: 107.55 kg

DRUGS (1)
  1. FLUTICASONE PROPIONATE [Suspect]
     Active Substance: FLUTICASONE PROPIONATE
     Indication: Allergy to animal
     Dosage: FREQUENCY : DAILY;?
     Route: 055
     Dates: start: 20230316, end: 20230326

REACTIONS (1)
  - Cellulitis [None]

NARRATIVE: CASE EVENT DATE: 20230326
